FAERS Safety Report 5678308-1 (Version None)
Quarter: 2008Q1

REPORT INFORMATION
  Report Type: 
  Country: None (occurrence: None)
  Receive Date: 20080320
  Receipt Date: 20080312
  Transmission Date: 20080703
  Serious: Yes (Other)
  Sender: FDA-Public Use
  Company Number: 2008006310

PATIENT
  Age: 80 Year
  Sex: Female
  Weight: 58.9676 kg

DRUGS (5)
  1. ADVANCED LISTERINE WITH TARTAR PROTECTION (MENTHOL, METHYL SALICYLATE, [Suspect]
     Indication: DENTAL DISORDER PROPHYLAXIS
     Dosage: UNSPECIFIED, ONCE; ORAL
     Route: 048
     Dates: start: 20080104, end: 20080104
  2. DIOVAN [Concomitant]
  3. AVANDIA [Concomitant]
  4. ANTIDEPRESSANTS (ANTIDEPRESSANTS) [Concomitant]
  5. SYNTHROID [Concomitant]

REACTIONS (2)
  - BURNING SENSATION [None]
  - ORAL DISCOMFORT [None]
